FAERS Safety Report 8346324-7 (Version None)
Quarter: 2012Q2

REPORT INFORMATION
  Report Type: 
  Country: None (occurrence: None)
  Receive Date: 20120509
  Receipt Date: 20120502
  Transmission Date: 20120825
  Serious: Yes (Other)
  Sender: FDA-Public Use
  Company Number: DE-PFIZER INC-2012107340

PATIENT
  Age: 63 Year
  Sex: Female
  Weight: 80 kg

DRUGS (4)
  1. RANITIDINE [Concomitant]
     Dosage: 50 MG, UNK
     Route: 042
     Dates: start: 20120208, end: 20120328
  2. DEXAMETHASONE [Concomitant]
     Dosage: 12 MG, UNK
     Route: 042
     Dates: start: 20120208, end: 20120328
  3. CLEMASTINE FUMARATE [Concomitant]
     Dosage: 2 MG, UNK
     Route: 042
     Dates: start: 20120208, end: 20120328
  4. PACLITAXEL [Suspect]
     Indication: BREAST CANCER FEMALE
     Dosage: 153 MG, WEEKLY
     Route: 042
     Dates: start: 20120208, end: 20120328

REACTIONS (1)
  - RASH MACULO-PAPULAR [None]
